FAERS Safety Report 10039369 (Version 5)
Quarter: 2014Q2

REPORT INFORMATION
  Report Type: Spontaneous
  Country: US (occurrence: US)
  Receive Date: 20140326
  Receipt Date: 20140505
  Transmission Date: 20141212
  Serious: Yes (Disabling, Other)
  Sender: FDA-Public Use
  Company Number: PHEH2014US005569

PATIENT
  Sex: Female

DRUGS (2)
  1. VIVELLE DOT [Suspect]
     Dosage: 0.05 MG, BIW
     Route: 062
  2. VIVELLE DOT [Suspect]
     Dosage: 0.375 MG, UNK
     Route: 062

REACTIONS (14)
  - Grip strength decreased [Recovering/Resolving]
  - Spondylitic myelopathy [Unknown]
  - Hypoaesthesia [Recovering/Resolving]
  - Gait disturbance [Recovering/Resolving]
  - Asthenia [Recovering/Resolving]
  - Fatigue [Recovering/Resolving]
  - Pain [Recovering/Resolving]
  - Dry skin [Recovering/Resolving]
  - Dyspnoea [Recovering/Resolving]
  - Breast tenderness [Unknown]
  - Application site erythema [Unknown]
  - Wrong technique in drug usage process [Unknown]
  - Incorrect dose administered [Unknown]
  - Drug ineffective [Unknown]
